FAERS Safety Report 4282363-3 (Version None)
Quarter: 2004Q1

REPORT INFORMATION
  Report Type: 
  Country: None (occurrence: None)
  Receive Date: 20040120
  Receipt Date: 20031028
  Transmission Date: 20041129
  Serious: Yes (Hospitalization)
  Sender: FDA-Public Use
  Company Number: US-JNJFOC-20031100091

PATIENT
  Age: 23 Year
  Sex: Female
  Weight: 60.3284 kg

DRUGS (1)
  1. COPPER T MODEL TCU 380A [Suspect]
     Indication: CONTRACEPTION
     Route: 015
     Dates: start: 20030811, end: 20031023

REACTIONS (3)
  - INTRA-UTERINE CONTRACEPTIVE DEVICE EXPELLED [None]
  - METRORRHAGIA [None]
  - UTERINE SPASM [None]
